FAERS Safety Report 16880980 (Version 1)
Quarter: 2019Q4

REPORT INFORMATION
  Report Type: Spontaneous
  Country: US (occurrence: US)
  Receive Date: 20190807
  Receipt Date: 20190807
  Transmission Date: 20200122
  Serious: No
  Sender: FDA-Public Use
  Company Number: None

PATIENT
  Age: 32 Year
  Sex: Male
  Weight: 76.2 kg

DRUGS (1)
  1. FERUMOXTYTOL [Suspect]
     Active Substance: FERUMOXYTOL
     Indication: INFUSION
     Route: 042
     Dates: start: 20190315, end: 20190315

REACTIONS (13)
  - Pain [None]
  - Rash [None]
  - Oxygen saturation decreased [None]
  - Urticaria [None]
  - Abdominal pain [None]
  - Chest discomfort [None]
  - Respiratory rate increased [None]
  - Respiratory depression [None]
  - Hypoaesthesia [None]
  - Hypertension [None]
  - Pruritus [None]
  - Heart rate increased [None]
  - Dyspnoea [None]

NARRATIVE: CASE EVENT DATE: 20190315
